FAERS Safety Report 6847168-5 (Version None)
Quarter: 2010Q3

REPORT INFORMATION
  Report Type: 
  Country: None (occurrence: None)
  Receive Date: 20100716
  Receipt Date: 20100708
  Transmission Date: 20110219
  Serious: No
  Sender: FDA-Public Use
  Company Number: US-BIOGENIDEC-2010BI023066

PATIENT
  Sex: Female

DRUGS (1)
  1. AVONEX [Suspect]
     Indication: MULTIPLE SCLEROSIS
     Route: 030

REACTIONS (5)
  - ABDOMINAL PAIN UPPER [None]
  - BONE DENSITY DECREASED [None]
  - FOOT FRACTURE [None]
  - HEPATOMEGALY [None]
  - RIB FRACTURE [None]
